FAERS Safety Report 10031434 (Version 2)
Quarter: 2014Q2

REPORT INFORMATION
  Report Type: Spontaneous
  Country: NL (occurrence: NL)
  Receive Date: 20140324
  Receipt Date: 20140407
  Transmission Date: 20141212
  Serious: Yes (Death)
  Sender: FDA-Public Use
  Company Number: NL-TEVA-470211ISR

PATIENT
  Age: 3 Year
  Sex: Male

DRUGS (2)
  1. AMOXICILLIN [Suspect]
     Indication: EAR INFECTION
     Dosage: 5 DAY COURSE
     Dates: start: 20111216
  2. PARACETAMOL [Suspect]
     Dates: start: 201112

REACTIONS (1)
  - Brain abscess [Fatal]
